FAERS Safety Report 15259994 (Version 3)
Quarter: 2019Q1

REPORT INFORMATION
  Report Type: Spontaneous
  Country: US (occurrence: US)
  Receive Date: 20180809
  Receipt Date: 20190221
  Transmission Date: 20190417
  Serious: No
  Sender: FDA-Public Use
  Company Number: US-PFIZER INC-2018318326

PATIENT
  Age: 74 Year
  Sex: Male
  Weight: 86.17 kg

DRUGS (1)
  1. COLESTIPOL HCL [Suspect]
     Active Substance: COLESTIPOL HYDROCHLORIDE
     Indication: DIARRHOEA
     Dosage: 1 G, DAILY
     Route: 048
     Dates: start: 20170507

REACTIONS (6)
  - Foreign body in respiratory tract [Unknown]
  - Product use complaint [Not Recovered/Not Resolved]
  - Drug effective for unapproved indication [Unknown]
  - Product size issue [Not Recovered/Not Resolved]
  - Wrong technique in product usage process [Unknown]
  - Dysphagia [Not Recovered/Not Resolved]

NARRATIVE: CASE EVENT DATE: 201705
